FAERS Safety Report 6614114-9 (Version None)
Quarter: 2010Q1

REPORT INFORMATION
  Report Type: 
  Country: None (occurrence: None)
  Receive Date: 20100304
  Receipt Date: 20100222
  Transmission Date: 20100710
  Serious: Yes (Other)
  Sender: FDA-Public Use
  Company Number: US-JNJFOC-20100207134

PATIENT
  Age: 66 Year
  Sex: Male
  Weight: 81.65 kg

DRUGS (3)
  1. EXTRA STRENGTH TYLENOL [Suspect]
     Indication: DRUG USE FOR UNKNOWN INDICATION
     Route: 048
  2. EXTRA STRENGTH TYLENOL [Suspect]
     Route: 048
  3. JANUMET [Concomitant]
     Indication: DIABETES MELLITUS
     Dosage: 50/500 MG DAILY

REACTIONS (4)
  - FEELING HOT [None]
  - OEDEMA PERIPHERAL [None]
  - PRODUCT QUALITY ISSUE [None]
  - SKIN TIGHTNESS [None]
